FAERS Safety Report 20291583 (Version 1)
Quarter: 2022Q1

REPORT INFORMATION
  Report Type: Spontaneous
  Country: US (occurrence: None)
  Receive Date: 20220103
  Receipt Date: 20220103
  Transmission Date: 20220423
  Serious: Yes (Hospitalization)
  Sender: FDA-Public Use
  Company Number: None

PATIENT
  Age: 50 Year
  Sex: Male

DRUGS (1)
  1. TEMOZOLOMIDE [Suspect]
     Active Substance: TEMOZOLOMIDE
     Route: 048
     Dates: start: 202108

REACTIONS (4)
  - Thrombosis [None]
  - Hair colour changes [None]
  - Alopecia [None]
  - Alopecia [None]

NARRATIVE: CASE EVENT DATE: 20211227
